FAERS Safety Report 11601252 (Version 1)
Quarter: 2015Q4

REPORT INFORMATION
  Report Type: Spontaneous
  Country: US (occurrence: US)
  Receive Date: 20151006
  Receipt Date: 20151006
  Transmission Date: 20160304
  Serious: No
  Sender: FDA-Public Use
  Company Number: US-AMGEN-USASP2015019347

PATIENT
  Age: 60 Year
  Sex: Female

DRUGS (2)
  1. PROLIA [Suspect]
     Active Substance: DENOSUMAB
     Indication: BONE LOSS
     Dosage: UNK
     Route: 065
     Dates: start: 2014
  2. TAMOXIFEN [Concomitant]
     Active Substance: TAMOXIFEN

REACTIONS (3)
  - Toothache [Unknown]
  - Tooth fracture [Unknown]
  - Tooth extraction [Unknown]
